FAERS Safety Report 7038370-0 (Version None)
Quarter: 2010Q4

REPORT INFORMATION
  Report Type: 
  Country: None (occurrence: None)
  Receive Date: 20101011
  Receipt Date: 20091217
  Transmission Date: 20110411
  Serious: No
  Sender: FDA-Public Use
  Company Number: US-PFIZER INC-2009313177

PATIENT
  Sex: Female

DRUGS (6)
  1. GABAPENTIN [Suspect]
     Indication: BACK PAIN
     Dosage: UNK
  2. GABAPENTIN [Suspect]
     Dosage: 100 MG, 1X/DAY
  3. HYDROCHLOROTHIAZIDE [Concomitant]
     Dosage: UNK
  4. COZAAR [Concomitant]
     Dosage: UNK
  5. LEVOTHYROXINE [Concomitant]
     Dosage: UNK
  6. FISH OIL [Concomitant]
     Dosage: UNK

REACTIONS (4)
  - ABNORMAL SENSATION IN EYE [None]
  - BACK PAIN [None]
  - EYE IRRITATION [None]
  - VISUAL IMPAIRMENT [None]
